FAERS Safety Report 5299231-0 (Version None)
Quarter: 2007Q2

REPORT INFORMATION
  Report Type: 
  Country: None (occurrence: None)
  Receive Date: 20070410
  Receipt Date: 20070405
  Transmission Date: 20071010
  Serious: Yes (Hospitalization, Other)
  Sender: FDA-Public Use
  Company Number: 13737739

PATIENT
  Age: 57 Year
  Sex: Female

DRUGS (1)
  1. EMSAM [Suspect]
     Indication: MAJOR DEPRESSION
     Dosage: 6 MILLIEQUIVALENT, 1/24
     Dates: end: 20070401

REACTIONS (3)
  - APPLICATION SITE RASH [None]
  - DRUG INTERACTION [None]
  - HYPERTENSIVE CRISIS [None]
